FAERS Safety Report 8382693 (Version 3)
Quarter: 2013Q2

REPORT INFORMATION
  Report Type: Spontaneous
  Country: US (occurrence: US)
  Receive Date: 20120201
  Receipt Date: 20130411
  Transmission Date: 20140414
  Serious: Yes (Other)
  Sender: FDA-Public Use
  Company Number: US-PFIZER INC-2012022142

PATIENT
  Age: 61 Year
  Sex: Female
  Weight: 70 kg

DRUGS (4)
  1. PREMPRO [Suspect]
     Indication: MENOPAUSAL DISORDER
     Dosage: UNK, 1X/DAY
     Route: 048
     Dates: start: 1986, end: 20070101
  2. PREMARIN [Suspect]
     Dosage: UNK
  3. POTASSIUM [Concomitant]
     Indication: HYPERTENSION
     Dosage: UNK
  4. IBUPROFEN [Concomitant]
     Indication: SPINAL COLUMN STENOSIS
     Dosage: UNK

REACTIONS (7)
  - Functional gastrointestinal disorder [Recovered/Resolved]
  - Dyspepsia [Recovered/Resolved]
  - Eating disorder [Recovered/Resolved]
  - Weight decreased [Recovered/Resolved]
  - Pain [Recovered/Resolved]
  - Vulvovaginal mycotic infection [Recovered/Resolved]
  - Vulvovaginal swelling [Recovered/Resolved]
